FAERS Safety Report 17750960 (Version 1)
Quarter: 2020Q2

REPORT INFORMATION
  Report Type: Spontaneous
  Country: US (occurrence: US)
  Receive Date: 20200506
  Receipt Date: 20200506
  Transmission Date: 20200714
  Serious: Yes (Hospitalization, Other)
  Sender: FDA-Public Use
  Company Number: None

PATIENT
  Age: 31 Year
  Sex: Male
  Weight: 133.3 kg

DRUGS (22)
  1. CEFAZOLIN [Concomitant]
     Active Substance: CEFAZOLIN
  2. HEPARIN [Concomitant]
     Active Substance: HEPARIN SODIUM
  3. LIDOCAINE. [Concomitant]
     Active Substance: LIDOCAINE
  4. AMLODIPINE [Concomitant]
     Active Substance: AMLODIPINE BESYLATE
  5. CEFEPIME [Concomitant]
     Active Substance: CEFEPIME HYDROCHLORIDE
  6. FENTANYL. [Concomitant]
     Active Substance: FENTANYL
  7. MAGNESIUM SULFATE. [Concomitant]
     Active Substance: MAGNESIUM SULFATE
  8. ALPRAZOLAM. [Concomitant]
     Active Substance: ALPRAZOLAM
  9. ASCORBIC ACID. [Concomitant]
     Active Substance: ASCORBIC ACID
  10. ENOXAPARIN [Concomitant]
     Active Substance: ENOXAPARIN
  11. FUROSEMIDE. [Concomitant]
     Active Substance: FUROSEMIDE
  12. ACETAMINOPHEN. [Concomitant]
     Active Substance: ACETAMINOPHEN
  13. ALBUTEROL. [Concomitant]
     Active Substance: ALBUTEROL
  14. BISACODYL. [Concomitant]
     Active Substance: BISACODYL
  15. IOPAMIDOL [Concomitant]
     Active Substance: IOPAMIDOL
  16. TOCILIZUMAB. [Suspect]
     Active Substance: TOCILIZUMAB
     Indication: COVID-19
     Dosage: ?          OTHER FREQUENCY:X 2 DOSES;?
     Route: 040
     Dates: start: 20200417, end: 20200419
  17. CISATRACURIUM. [Concomitant]
     Active Substance: CISATRACURIUM
  18. LORAZEPAM. [Concomitant]
     Active Substance: LORAZEPAM
  19. DEXMEDETOMIDINE. [Concomitant]
     Active Substance: DEXMEDETOMIDINE
  20. HYDROXYCHLOROQUINE [Concomitant]
     Active Substance: HYDROXYCHLOROQUINE
  21. LISONOPRIL [Concomitant]
  22. HYDROCODONE [Concomitant]
     Active Substance: HYDROCODONE

REACTIONS (2)
  - Staphylococcal bacteraemia [None]
  - Off label use [None]

NARRATIVE: CASE EVENT DATE: 20200501
